FAERS Safety Report 4541022-X (Version None)
Quarter: 2004Q4

REPORT INFORMATION
  Report Type: 
  Country: None (occurrence: None)
  Receive Date: 20041229
  Receipt Date: 20041101
  Transmission Date: 20050328
  Serious: Yes (Hospitalization)
  Sender: FDA-Public Use
  Company Number: ZA-NOVOPROD-240247

PATIENT
  Age: 59 Year
  Sex: Female
  Weight: 64 kg

DRUGS (8)
  1. NOVOMIX 30 FLEXPEN [Suspect]
     Indication: INSULIN-REQUIRING TYPE II DIABETES MELLITUS
     Dosage: 130 IU, UNK
     Dates: start: 20040903
  2. ADCO-CAPTOPRIL [Concomitant]
     Indication: HYPERTENSION
     Dosage: 25 MG, BID
     Dates: start: 19990101
  3. ATERAX [Concomitant]
     Indication: HYPERSENSITIVITY
     Dosage: 25 MG, HALF TABL. DAILY
     Dates: start: 19990101
  4. INDAPAMIDE [Concomitant]
     Indication: HYPERTENSION
     Dosage: 2 TAB, QD
     Dates: start: 19990101
  5. MYPRODOL ^ADCOCK INGRAM^ [Concomitant]
  6. NEURONTIN [Concomitant]
     Indication: PAIN
  7. PANADO [Concomitant]
     Indication: PAIN
  8. STOPAYNE CAPSULES [Concomitant]
     Indication: PAIN

REACTIONS (5)
  - ANGINA PECTORIS [None]
  - BLOOD GLUCOSE ABNORMAL [None]
  - PAIN [None]
  - PHARMACEUTICAL PRODUCT COMPLAINT [None]
  - SWELLING [None]
